FAERS Safety Report 9085450 (Version 1)
Quarter: 2013Q1

REPORT INFORMATION
  Report Type: Report from Study
  Country: US (occurrence: US)
  Receive Date: 20130130
  Receipt Date: 20130130
  Transmission Date: 20140127
  Serious: No
  Sender: FDA-Public Use
  Company Number: US-ABBOTT-12P-163-0945534-00

PATIENT
  Age: 45 Year
  Sex: Female

DRUGS (3)
  1. HUMIRA 40 MG/0.8 ML PEN [Suspect]
     Indication: PSORIASIS
     Dates: start: 20120603, end: 20120603
  2. HUMIRA 40 MG/0.8 ML PEN [Suspect]
     Dates: start: 20120610
  3. HYDROXYZINE HCL [Concomitant]
     Indication: HYPERSENSITIVITY

REACTIONS (14)
  - Pyrexia [Not Recovered/Not Resolved]
  - Fatigue [Not Recovered/Not Resolved]
  - Headache [Recovered/Resolved]
  - Headache [Recovered/Resolved]
  - Nausea [Not Recovered/Not Resolved]
  - Injection site pain [Not Recovered/Not Resolved]
  - Rash [Not Recovered/Not Resolved]
  - Pruritus [Unknown]
  - Rash erythematous [Unknown]
  - Rash [Unknown]
  - Sleep disorder due to a general medical condition [Unknown]
  - Psoriasis [Not Recovered/Not Resolved]
  - Psoriasis [Not Recovered/Not Resolved]
  - Milia [Not Recovered/Not Resolved]
